FAERS Safety Report 16531365 (Version 1)
Quarter: 2019Q3

REPORT INFORMATION
  Report Type: Other
  Country: GB (occurrence: FR)
  Receive Date: 20190704
  Receipt Date: 20190704
  Transmission Date: 20191004
  Serious: No
  Sender: FDA-Public Use
  Company Number: FR-BLUE EARTH DIAGNOSTICS LIMITED-BED-000072-2018

PATIENT
  Sex: Male
  Weight: 75 kg

DRUGS (2)
  1. AXUMIN [Suspect]
     Active Substance: FLUCICLOVINE F-18
     Indication: COMPUTERISED TOMOGRAM
  2. AXUMIN [Suspect]
     Active Substance: FLUCICLOVINE F-18
     Indication: PROSTATE CANCER
     Dosage: 238 MBQ (3 MBQ/KG), UNK
     Route: 041
     Dates: start: 20181130, end: 20181130

REACTIONS (6)
  - Dizziness [Recovered/Resolved]
  - Malaise [Recovered/Resolved]
  - Nausea [Recovered/Resolved]
  - Vomiting [Recovered/Resolved]
  - Diarrhoea [Recovered/Resolved]
  - Vertigo [Recovered/Resolved]

NARRATIVE: CASE EVENT DATE: 20181130
